FAERS Safety Report 11101132 (Version 1)
Quarter: 2015Q2

REPORT INFORMATION
  Report Type: Spontaneous
  Country: US (occurrence: US)
  Receive Date: 20150508
  Receipt Date: 20150508
  Transmission Date: 20150821
  Serious: No
  Sender: FDA-Public Use
  Company Number: US-PFIZER INC-2015150257

PATIENT
  Age: 81 Year
  Sex: Male
  Weight: 64 kg

DRUGS (2)
  1. ADVIL [Suspect]
     Active Substance: IBUPROFEN
     Indication: ARTHRALGIA
     Dosage: 4 DF, DAILY
  2. ADVIL [Suspect]
     Active Substance: IBUPROFEN
     Dosage: 8 DF, DAILY

REACTIONS (2)
  - Intentional product misuse [Unknown]
  - Ammonia increased [Unknown]
